FAERS Safety Report 11368762 (Version 1)
Quarter: 2015Q3

REPORT INFORMATION
  Report Type: Spontaneous
  Country: IT (occurrence: IT)
  Receive Date: 20150812
  Receipt Date: 20150812
  Transmission Date: 20151125
  Serious: Yes (Other)
  Sender: FDA-Public Use
  Company Number: IT-HOSPIRA-2969138

PATIENT
  Age: 31 Day
  Sex: Female

DRUGS (2)
  1. VANCOMICINA [Suspect]
     Active Substance: VANCOMYCIN
     Indication: SEPSIS NEONATAL
     Dosage: DAILY
     Route: 042
     Dates: start: 20150723
  2. GENTAMICIN. [Concomitant]
     Active Substance: GENTAMICIN
     Indication: PRODUCT USED FOR UNKNOWN INDICATION
     Route: 042
     Dates: start: 20150720, end: 20150730

REACTIONS (2)
  - Erythema [Recovered/Resolved]
  - Tachycardia [Recovered/Resolved]

NARRATIVE: CASE EVENT DATE: 20150727
